FAERS Safety Report 8806965 (Version 4)
Quarter: 2013Q4

REPORT INFORMATION
  Report Type: Report from Study
  Country: JP (occurrence: JP)
  Receive Date: 20120925
  Receipt Date: 20131105
  Transmission Date: 20140711
  Serious: Yes (Hospitalization, Other)
  Sender: FDA-Public Use
  Company Number: JP-VERTEX PHARMACEUTICAL INC.-AE-2012-003747

PATIENT
  Age: 66 Year
  Sex: Female

DRUGS (14)
  1. VX-950 (TELAPREVIR) [Suspect]
     Indication: CHRONIC HEPATITIS C
     Dosage: 2250 MG, QD
     Route: 048
     Dates: start: 20120120, end: 20120330
  2. PEGINTRON [Suspect]
     Indication: CHRONIC HEPATITIS C
     Dosage: 1.5 ?G/KG, QW
     Route: 058
     Dates: start: 20120120
  3. REBETOL [Suspect]
     Indication: CHRONIC HEPATITIS C
     Dosage: 800 MG, QD
     Route: 048
     Dates: start: 20120120, end: 20120203
  4. REBETOL [Suspect]
     Dosage: 600 MG, QD
     Route: 048
     Dates: start: 20120204, end: 20120210
  5. REBETOL [Suspect]
     Dosage: 400 MG, QD
     Route: 048
     Dates: start: 20120211, end: 20120217
  6. REBETOL [Suspect]
     Dosage: 200 MG, QD
     Route: 048
     Dates: start: 20120218, end: 20120330
  7. REBETOL [Suspect]
     Dosage: 200 MG, QD
     Route: 048
     Dates: start: 20120413
  8. SENNOSIDE [Concomitant]
     Dosage: 12 MG, QD
     Route: 048
  9. CRAVIT [Concomitant]
     Dosage: 0.5 %, QD
     Route: 047
     Dates: start: 20120125
  10. PRIMPERAN [Concomitant]
     Dosage: 10 MG, QD, PRN
     Route: 042
     Dates: start: 20120129, end: 20120129
  11. PRIMPERAN [Concomitant]
     Route: 048
     Dates: start: 20120309
  12. LOXOPROFEN [Concomitant]
     Dosage: 60 MG, QD, PRN
     Route: 048
  13. REBAMIPIDE [Concomitant]
     Dosage: 100 MG, QD, PRN
     Route: 048
  14. MAGLAX [Concomitant]
     Dosage: 990 MG, QD
     Route: 048

REACTIONS (3)
  - Decreased appetite [Recovered/Resolved]
  - Malaise [Recovered/Resolved]
  - Loss of consciousness [Recovered/Resolved]
